FAERS Safety Report 9209615 (Version 1)
Quarter: 2013Q2

REPORT INFORMATION
  Report Type: Spontaneous
  Country: US (occurrence: US)
  Receive Date: 20130404
  Receipt Date: 20130404
  Transmission Date: 20140414
  Serious: Yes (Death, Other)
  Sender: FDA-Public Use
  Company Number: US-CELGENEUS-163-21880-13034676

PATIENT
  Sex: 0

DRUGS (7)
  1. REVLIMID [Suspect]
     Indication: ACUTE MYELOID LEUKAEMIA
     Dosage: 25 MILLIGRAM
     Route: 048
  2. REVLIMID [Suspect]
     Dosage: 30 MILLIGRAM
     Route: 048
  3. CYTARABINE [Suspect]
     Indication: ACUTE MYELOID LEUKAEMIA
     Dosage: 1.5 MICROGRAM/SQ. METER
     Route: 065
  4. CYTARABINE [Suspect]
     Dosage: 100 MILLIGRAM/SQ. METER
     Route: 065
  5. CYTARABINE [Suspect]
     Dosage: 1 MILLIGRAM/SQ. METER
     Route: 065
  6. IDARUBICIN [Suspect]
     Indication: ACUTE MYELOID LEUKAEMIA
     Dosage: 12 MILLIGRAM/SQ. METER
     Route: 065
  7. IDARUBICIN [Suspect]
     Dosage: 8 MILLIGRAM/SQ. METER
     Route: 065

REACTIONS (5)
  - Haemorrhage intracranial [Fatal]
  - Cardiomyopathy [Fatal]
  - Bone marrow failure [Unknown]
  - Mucosal inflammation [Unknown]
  - Rash [Unknown]
